FAERS Safety Report 4973265-5 (Version None)
Quarter: 2006Q2

REPORT INFORMATION
  Report Type: 
  Country: None (occurrence: None)
  Receive Date: 20060414
  Receipt Date: 20060202
  Transmission Date: 20061013
  Serious: Yes (Hospitalization)
  Sender: FDA-Public Use
  Company Number: FR-ABBOTT-06P-056-0323947-00

PATIENT
  Sex: Female
  Weight: 49 kg

DRUGS (8)
  1. HUMIRA [Suspect]
     Indication: RHEUMATOID ARTHRITIS
     Route: 058
     Dates: start: 20051207, end: 20060119
  2. METHOTREXATE [Concomitant]
     Indication: RHEUMATOID ARTHRITIS
     Route: 048
     Dates: start: 20020101, end: 20040401
  3. METHOTREXATE [Concomitant]
     Route: 048
     Dates: start: 20040401, end: 20060204
  4. PREDNISONE TAB [Concomitant]
     Indication: RHEUMATOID ARTHRITIS
     Route: 048
     Dates: start: 20051017, end: 20060103
  5. KINERET [Concomitant]
     Indication: RHEUMATOID ARTHRITIS
     Route: 058
     Dates: start: 20020522, end: 20051001
  6. RIFAMPIN AND ISONIAZID [Concomitant]
     Indication: ANTIBIOTIC PROPHYLAXIS
     Route: 048
     Dates: start: 20051114, end: 20060131
  7. ALENDRONATE SODIUM [Concomitant]
     Indication: OSTEOPOROSIS
     Route: 048
     Dates: start: 20040101, end: 20060213
  8. ACETAMINOPHEN W/ PROPOXYPHENE HCL [Concomitant]
     Indication: BACK PAIN
     Route: 048
     Dates: start: 20060127, end: 20060201

REACTIONS (4)
  - HYPOXIA [None]
  - LUNG INFECTION [None]
  - PAIN IN EXTREMITY [None]
  - SHOULDER PAIN [None]
